FAERS Safety Report 14094832 (Version 4)
Quarter: 2017Q4

REPORT INFORMATION
  Report Type: Spontaneous
  Country: US (occurrence: US)
  Receive Date: 20171016
  Receipt Date: 20171229
  Transmission Date: 20180321
  Serious: Yes (Other)
  Sender: FDA-Public Use
  Company Number: US-INCYTE CORPORATION-2017IN008711

PATIENT

DRUGS (4)
  1. JAKAFI [Suspect]
     Active Substance: RUXOLITINIB
     Dosage: 15 MG, TAKE 1 TABLET DAILY ALTERNATING WITH 2 TABLETS DAILY EVERY OTHER DAY
     Route: 048
  2. JAKAFI [Suspect]
     Active Substance: RUXOLITINIB
     Dosage: 7.5,MG, QD
     Route: 048
  3. JAKAFI [Suspect]
     Active Substance: RUXOLITINIB
     Indication: POLYCYTHAEMIA VERA
     Dosage: 15 MG, QD
     Route: 048
  4. JAKAFI [Suspect]
     Active Substance: RUXOLITINIB
     Dosage: 15 MG, BID
     Route: 048

REACTIONS (10)
  - Gait inability [Unknown]
  - Fatigue [Unknown]
  - Malaise [Unknown]
  - Muscular weakness [Unknown]
  - Dyspnoea [Unknown]
  - Anaemia [Unknown]
  - Memory impairment [Unknown]
  - Eye disorder [Unknown]
  - Renal disorder [Unknown]
  - Visual acuity reduced [Unknown]
